FAERS Safety Report 10822348 (Version 1)
Quarter: 2015Q1

REPORT INFORMATION
  Report Type: Spontaneous
  Country: US (occurrence: None)
  Receive Date: 20150209
  Receipt Date: 20150209
  Transmission Date: 20150721
  Serious: Yes (Hospitalization)
  Sender: FDA-Public Use
  Company Number: RAP-0002-2015

PATIENT
  Age: 35 Year
  Sex: Male

DRUGS (14)
  1. RP103 (CYSTEAMINE BITARTRATE) (SUSTAINED-RELEASE CAPSULE) (CYSTEAMINE BITARTRATE) [Suspect]
     Active Substance: CYSTEAMINE BITARTRATE
     Indication: CYSTINOSIS
     Dosage: 2000 MG (1000 MG, 1 IN 12 HR), ORAL
     Route: 048
     Dates: start: 20131205
  2. AMLODIPINE/HCTZ [Concomitant]
  3. ALFACALCIDOL [Concomitant]
     Active Substance: ALFACALCIDOL
  4. CYSTEAMINE [Concomitant]
     Active Substance: CYSTEAMINE
  5. ATENOLOL. [Concomitant]
     Active Substance: ATENOLOL
  6. AMILORIDE/HYDROCHLOORTHIAZIDE [Concomitant]
  7. MYCOFENOLZUUR [Concomitant]
  8. LEVOCARNITINE. [Concomitant]
     Active Substance: LEVOCARNITINE
  9. ZOSYN [Suspect]
     Active Substance: PIPERACILLIN SODIUM\TAZOBACTAM SODIUM
     Indication: PRODUCT USED FOR UNKNOWN INDICATION
     Dates: start: 20141218
  10. FELODIPINE. [Concomitant]
     Active Substance: FELODIPINE
  11. PREDNISOLON [Concomitant]
     Active Substance: PREDNISOLONE
  12. PREDNISONE. [Concomitant]
     Active Substance: PREDNISONE
  13. PARACETAMOL [Concomitant]
     Active Substance: ACETAMINOPHEN
  14. CELLCEPT [Concomitant]
     Active Substance: MYCOPHENOLATE MOFETIL\MYCOPHENOLATE MOFETIL HYDROCHLORIDE

REACTIONS (5)
  - Diarrhoea [None]
  - Systemic inflammatory response syndrome [None]
  - Blood potassium decreased [None]
  - Cellulitis [None]
  - Tachycardia [None]

NARRATIVE: CASE EVENT DATE: 20141218
